FAERS Safety Report 13293780 (Version 1)
Quarter: 2017Q1

REPORT INFORMATION
  Report Type: Spontaneous
  Country: CN (occurrence: CN)
  Receive Date: 20170303
  Receipt Date: 20170303
  Transmission Date: 20170428
  Serious: Yes (Hospitalization, Other)
  Sender: FDA-Public Use
  Company Number: CN-GILEAD-2017-0260430

PATIENT
  Age: 63 Year
  Sex: Female

DRUGS (2)
  1. LAMIVUDINE. [Concomitant]
     Active Substance: LAMIVUDINE
     Indication: HEPATITIS B
     Dosage: 100 MG, QD
  2. ADEFOVIR DIPIVOXIL. [Suspect]
     Active Substance: ADEFOVIR DIPIVOXIL
     Indication: HEPATITIS B
     Dosage: 10 MG, QD
     Route: 048

REACTIONS (7)
  - Arthralgia [Recovered/Resolved]
  - Osteoporosis [Recovered/Resolved]
  - Lumbar spinal stenosis [Recovered/Resolved]
  - Hypoaesthesia [Recovered/Resolved]
  - Multiple fractures [Recovered/Resolved]
  - Intervertebral disc protrusion [Recovered/Resolved]
  - Fanconi syndrome acquired [Recovered/Resolved]

NARRATIVE: CASE EVENT DATE: 201303
